FAERS Safety Report 8965049 (Version 1)
Quarter: 2012Q4

REPORT INFORMATION
  Report Type: 
  Country: US (occurrence: US)
  Receive Date: 20121213
  Receipt Date: 20121213
  Transmission Date: 20130627
  Serious: No
  Sender: FDA-Public Use
  Company Number: US-BRISTOL-MYERS SQUIBB COMPANY-16366072

PATIENT
  Age: 77 Year
  Sex: Female
  Weight: 72 kg

DRUGS (8)
  1. PRAVASTATINE [Suspect]
     Dates: start: 201111
  2. ATENOLOL [Suspect]
     Dates: start: 201111
  3. PLAVIX [Concomitant]
     Dosage: Pill 50mg
     Route: 048
     Dates: start: 20101017
  4. METOPROLOL [Concomitant]
     Dosage: Initially given 50mg then reduced to 25mg
  5. LIPITOR [Concomitant]
     Dates: end: 201109
  6. ASPIRIN [Concomitant]
     Dosage: Initially given 325mg then reduced to 81mg
  7. NORVASC [Concomitant]
  8. LISINOPRIL [Concomitant]

REACTIONS (4)
  - Epistaxis [Unknown]
  - Blood sodium decreased [Unknown]
  - Muscle spasms [Unknown]
  - Gingival bleeding [Unknown]
